FAERS Safety Report 10372878 (Version 1)
Quarter: 2014Q3

REPORT INFORMATION
  Report Type: Spontaneous
  Country: US (occurrence: US)
  Receive Date: 20140808
  Receipt Date: 20140808
  Transmission Date: 20150326
  Serious: No
  Sender: FDA-Public Use
  Company Number: US-BRISTOL-MYERS SQUIBB COMPANY-19560572

PATIENT
  Age: 89 Year
  Sex: Female
  Weight: 56.23 kg

DRUGS (1)
  1. SPRYCEL [Suspect]
     Active Substance: DASATINIB
     Indication: MYELOID LEUKAEMIA
     Dosage: SPRYCEL 70MG,1DF: 1TAB

REACTIONS (1)
  - Vulvovaginal burning sensation [Recovered/Resolved]
